FAERS Safety Report 15485032 (Version 3)
Quarter: 2018Q4

REPORT INFORMATION
  Report Type: Report from Study
  Country: US (occurrence: US)
  Receive Date: 20181010
  Receipt Date: 20181203
  Transmission Date: 20190205
  Serious: Yes (Hospitalization)
  Sender: FDA-Public Use
  Company Number: US-ACTELION-A-NJ2018-165739

PATIENT
  Age: 67 Year
  Sex: Female
  Weight: 69.39 kg

DRUGS (4)
  1. UPTRAVI [Suspect]
     Active Substance: SELEXIPAG
     Indication: PULMONARY ARTERIAL HYPERTENSION
     Dosage: 1200 MCG, BID
     Route: 048
  2. OPSUMIT [Suspect]
     Active Substance: MACITENTAN
     Indication: PULMONARY ARTERIAL HYPERTENSION
     Dosage: 10 MG, QD
     Route: 048
     Dates: start: 20171226
  3. UPTRAVI [Suspect]
     Active Substance: SELEXIPAG
     Dosage: UNK
     Route: 048
  4. ADEMPAS [Concomitant]
     Active Substance: RIOCIGUAT

REACTIONS (12)
  - Hospitalisation [Unknown]
  - Anxiety [Unknown]
  - Liver function test increased [Unknown]
  - Limb injury [Unknown]
  - Nasal congestion [Recovering/Resolving]
  - Oedema peripheral [Recovered/Resolved]
  - Haemorrhagic diathesis [Unknown]
  - Loss of consciousness [Recovered/Resolved]
  - Headache [Recovered/Resolved]
  - Ocular icterus [Unknown]
  - Weight increased [Unknown]
  - Fluid retention [Recovering/Resolving]

NARRATIVE: CASE EVENT DATE: 20171226
